FAERS Safety Report 15776441 (Version 1)
Quarter: 2018Q4

REPORT INFORMATION
  Report Type: Spontaneous
  Country: US (occurrence: US)
  Receive Date: 20181231
  Receipt Date: 20181231
  Transmission Date: 20190205
  Serious: No
  Sender: FDA-Public Use
  Company Number: US-GLAXOSMITHKLINE-US2018GSK232887

PATIENT
  Age: 73 Year
  Sex: Female

DRUGS (2)
  1. SALMETEROL XINAFOATE INHALATION POWDER [Suspect]
     Active Substance: SALMETEROL XINAFOATE
     Indication: ASTHMA
  2. ADVAIR DISKUS [Suspect]
     Active Substance: FLUTICASONE PROPIONATE\SALMETEROL XINAFOATE
     Indication: ASTHMA
     Dosage: UNK
     Route: 055

REACTIONS (3)
  - Asthma [Unknown]
  - Cardiac disorder [Unknown]
  - Drug ineffective [Unknown]
